FAERS Safety Report 5523936-7 (Version None)
Quarter: 2007Q4

REPORT INFORMATION
  Report Type: 
  Country: None (occurrence: None)
  Receive Date: 20071121
  Receipt Date: 20071120
  Transmission Date: 20080405
  Serious: Yes (Other)
  Sender: FDA-Public Use
  Company Number: US-SHR-US-2007-018974

PATIENT
  Age: 50 Year
  Sex: Female

DRUGS (2)
  1. BETASERON [Suspect]
     Dosage: 8 MIU, EVERY 2D
     Route: 058
     Dates: start: 20030801
  2. ASPIRIN [Concomitant]
     Dosage: UNK, 1X/DAY

REACTIONS (2)
  - INJECTION SITE BRUISING [None]
  - WEIGHT INCREASED [None]
